FAERS Safety Report 8252616-2 (Version None)
Quarter: 2012Q2

REPORT INFORMATION
  Report Type: 
  Country: None (occurrence: None)
  Receive Date: 20120402
  Receipt Date: 20120103
  Transmission Date: 20120825
  Serious: No
  Sender: FDA-Public Use
  Company Number: US-ABBOTT-11P-163-0842334-00

PATIENT
  Sex: Male
  Weight: 114.41 kg

DRUGS (7)
  1. NIASPAN [Concomitant]
     Indication: BLOOD CHOLESTEROL INCREASED
  2. LOVAZA [Concomitant]
     Indication: BLOOD TRIGLYCERIDES INCREASED
  3. HUMALOG [Concomitant]
     Indication: TYPE 2 DIABETES MELLITUS
  4. ANDROGEL [Suspect]
     Indication: BLOOD TESTOSTERONE DECREASED
     Dosage: 1 IN 1 DAY, PUMP
     Route: 061
     Dates: start: 20100213, end: 20100306
  5. ANDROGEL [Suspect]
     Dosage: 1 IN 1 DAY, PUMP
     Route: 061
     Dates: start: 20111103
  6. HUMULIN R [Concomitant]
     Indication: TYPE 2 DIABETES MELLITUS
  7. NIASPAN [Concomitant]
     Indication: BLOOD TRIGLYCERIDES INCREASED

REACTIONS (4)
  - GENITAL BURNING SENSATION [None]
  - DRUG ADMINISTERED AT INAPPROPRIATE SITE [None]
  - BLOOD TESTOSTERONE DECREASED [None]
  - DRUG INEFFECTIVE [None]
